FAERS Safety Report 6051174-0 (Version None)
Quarter: 2009Q1

REPORT INFORMATION
  Report Type: 
  Country: None (occurrence: None)
  Receive Date: 20090121
  Receipt Date: 20090112
  Transmission Date: 20090719
  Serious: Yes (Life-Threatening, Hospitalization, Other)
  Sender: FDA-Public Use
  Company Number: APP200900013

PATIENT
  Age: 50 Year
  Sex: Male

DRUGS (13)
  1. DEXAMETHASONE SODIUM PHOSPHATE [Suspect]
     Indication: DRUG USE FOR UNKNOWN INDICATION
     Dosage: 20 MG, INTRAVENOUS, 4 MG, 12  HR, 4 MG, 12 HR, 6 MG, 6 MG
     Route: 042
     Dates: start: 20081015
  2. DEXAMETHASONE SODIUM PHOSPHATE [Suspect]
     Indication: DRUG USE FOR UNKNOWN INDICATION
     Dosage: 20 MG, INTRAVENOUS, 4 MG, 12  HR, 4 MG, 12 HR, 6 MG, 6 MG
     Route: 042
     Dates: start: 20081016
  3. DEXAMETHASONE SODIUM PHOSPHATE [Suspect]
     Indication: DRUG USE FOR UNKNOWN INDICATION
     Dosage: 20 MG, INTRAVENOUS, 4 MG, 12  HR, 4 MG, 12 HR, 6 MG, 6 MG
     Route: 042
     Dates: start: 20081017
  4. DEXAMETHASONE SODIUM PHOSPHATE [Suspect]
     Indication: DRUG USE FOR UNKNOWN INDICATION
     Dosage: 20 MG, INTRAVENOUS, 4 MG, 12  HR, 4 MG, 12 HR, 6 MG, 6 MG
     Route: 042
     Dates: start: 20081018
  5. DEXAMETHASONE SODIUM PHOSPHATE [Suspect]
     Indication: DRUG USE FOR UNKNOWN INDICATION
     Dosage: 20 MG, INTRAVENOUS, 4 MG, 12  HR, 4 MG, 12 HR, 6 MG, 6 MG
     Route: 042
     Dates: start: 20081019
  6. CP-751, 871 [Suspect]
     Indication: PROSTATE CANCER
     Dosage: 1660 MG, 1 IN 3 WK, INTRAVENOUS
     Route: 042
     Dates: start: 20080717, end: 20080918
  7. DOCETAXEL [Suspect]
     Indication: PROSTATE CANCER
     Dosage: 147.9 MG, 1 IN 3 WK, INTRAVENOUS
     Route: 042
     Dates: start: 20080310, end: 20080626
  8. DOCETAXEL [Suspect]
     Indication: PROSTATE CANCER
     Dosage: 147.9 MG, 1 IN 3 WK, INTRAVENOUS
     Route: 042
     Dates: start: 20080717
  9. PREDNISONE TAB [Suspect]
     Indication: PROSTATE CANCER
     Dosage: 5 MG, 2 IN 1 D, ORAL
     Route: 048
     Dates: start: 20080310
  10. ZOMETA [Concomitant]
  11. ATENOLOL [Concomitant]
  12. TRAMADOL HCL [Concomitant]
  13. FENTANYL-100 [Concomitant]

REACTIONS (5)
  - AXONAL NEUROPATHY [None]
  - DIABETIC KETOACIDOSIS [None]
  - GUILLAIN-BARRE SYNDROME [None]
  - PNEUMONIA [None]
  - SEPTIC SHOCK [None]
